FAERS Safety Report 14068937 (Version 3)
Quarter: 2017Q4

REPORT INFORMATION
  Report Type: Spontaneous
  Country: US (occurrence: US)
  Receive Date: 20171010
  Receipt Date: 20171123
  Transmission Date: 20180321
  Serious: Yes (Other)
  Sender: FDA-Public Use
  Company Number: US-GLENMARK PHARMACEUTICALS-2017GMK029127

PATIENT

DRUGS (1)
  1. MUPIROCIN. [Suspect]
     Active Substance: MUPIROCIN
     Indication: STAPHYLOCOCCAL SKIN INFECTION
     Dosage: UNK
     Route: 061
     Dates: start: 20170908, end: 20170919

REACTIONS (9)
  - Application site pruritus [Recovering/Resolving]
  - Application site erythema [Recovering/Resolving]
  - Application site inflammation [Recovering/Resolving]
  - Scrotal inflammation [Recovering/Resolving]
  - Application site pain [Recovering/Resolving]
  - Application site rash [Recovering/Resolving]
  - Application site exfoliation [Recovering/Resolving]
  - Condition aggravated [Recovering/Resolving]
  - Balanoposthitis [Recovering/Resolving]

NARRATIVE: CASE EVENT DATE: 20170915
